FAERS Safety Report 12270288 (Version 2)
Quarter: 2017Q1

REPORT INFORMATION
  Report Type: Spontaneous
  Country: FR (occurrence: FR)
  Receive Date: 20160415
  Receipt Date: 20170106
  Transmission Date: 20170428
  Serious: Yes (Life-Threatening)
  Sender: FDA-Public Use
  Company Number: FR-GE HEALTHCARE MEDICAL DIAGNOSTICS-VISP-PR-1604S-0188

PATIENT
  Age: 73 Year
  Sex: Female

DRUGS (12)
  1. VISIPAQUE [Suspect]
     Active Substance: IODIXANOL
     Indication: DIAGNOSTIC PROCEDURE
  2. IMOVANE [Concomitant]
     Active Substance: ZOPICLONE
  3. VISIPAQUE [Suspect]
     Active Substance: IODIXANOL
     Indication: ABDOMINAL PAIN
  4. DESLORATADINE. [Concomitant]
     Active Substance: DESLORATADINE
  5. EFFERALGAN [Concomitant]
     Active Substance: ACETAMINOPHEN
  6. TEMGESIC [Concomitant]
     Active Substance: BUPRENORPHINE HYDROCHLORIDE
  7. LEVOTHYROX [Concomitant]
     Active Substance: LEVOTHYROXINE
  8. LANZOR [Concomitant]
     Active Substance: LANSOPRAZOLE
  9. ESIDREX [Concomitant]
     Active Substance: HYDROCHLOROTHIAZIDE
  10. VISIPAQUE [Suspect]
     Active Substance: IODIXANOL
     Indication: URINARY TRACT DISORDER
     Route: 042
     Dates: start: 20151216, end: 20151216
  11. ATACAND [Concomitant]
     Active Substance: CANDESARTAN CILEXETIL
  12. ACARBOSE. [Concomitant]
     Active Substance: ACARBOSE

REACTIONS (4)
  - Eosinophilia [Recovered/Resolved]
  - Anuria [Recovered/Resolved]
  - Acute kidney injury [Recovered/Resolved]
  - Rash pruritic [Recovered/Resolved]

NARRATIVE: CASE EVENT DATE: 20151218
